FAERS Safety Report 8133152-0 (Version None)
Quarter: 2012Q1

REPORT INFORMATION
  Report Type: 
  Country: None (occurrence: None)
  Receive Date: 20120213
  Receipt Date: 20120209
  Transmission Date: 20120608
  Serious: Yes (Hospitalization)
  Sender: FDA-Public Use
  Company Number: PHHO2012DE002458

PATIENT
  Sex: Male
  Weight: 65.1 kg

DRUGS (4)
  1. CITALOPRAM HYDROBROMIDE [Concomitant]
     Indication: DEPRESSION
     Dosage: 20 MG, QD
     Route: 048
     Dates: start: 20111128
  2. METOCLOPRAMIDE [Concomitant]
     Indication: HYPERTENSION
     Dosage: 47.5 MG, QD
     Route: 048
     Dates: start: 19980101
  3. LYRICA [Concomitant]
     Indication: PAIN
     Dosage: 75 MG, QD
     Route: 048
     Dates: start: 20110501
  4. FTY [Suspect]
     Dosage: 0.5 MG, QD
     Route: 048
     Dates: start: 20111215, end: 20120208

REACTIONS (2)
  - DIZZINESS [None]
  - COGNITIVE DISORDER [None]
